FAERS Safety Report 5187483-7 (Version None)
Quarter: 2006Q4

REPORT INFORMATION
  Report Type: 
  Country: None (occurrence: None)
  Receive Date: 20061220
  Receipt Date: 20061207
  Transmission Date: 20070319
  Serious: Yes (Hospitalization)
  Sender: FDA-Public Use
  Company Number: US-ABBOTT-06P-163-0352885-00

PATIENT
  Sex: Male
  Weight: 13.847 kg

DRUGS (3)
  1. OMNICEF [Suspect]
     Indication: OTITIS MEDIA
     Route: 048
     Dates: start: 20061120, end: 20061126
  2. OMNICEF [Suspect]
     Indication: UPPER RESPIRATORY TRACT INFECTION
  3. OMNICEF [Suspect]
     Indication: TONSILLITIS

REACTIONS (5)
  - CLOSTRIDIAL INFECTION [None]
  - DEHYDRATION [None]
  - DIARRHOEA [None]
  - LIVER FUNCTION TEST ABNORMAL [None]
  - RASH [None]
